FAERS Safety Report 7812905-X (Version None)
Quarter: 2011Q4

REPORT INFORMATION
  Report Type: 
  Country: None (occurrence: None)
  Receive Date: 20111013
  Receipt Date: 20111004
  Transmission Date: 20120403
  Serious: Yes (Other)
  Sender: FDA-Public Use
  Company Number: BR-SANOFI-AVENTIS-2011SA064132

PATIENT
  Sex: Female

DRUGS (2)
  1. AMARYL [Suspect]
     Dosage: 1 OR 2 MG TABLETS
     Route: 065
  2. AMARYL [Suspect]
     Dosage: 4 MG TABLETS
     Route: 065

REACTIONS (6)
  - OEDEMA PERIPHERAL [None]
  - PERIPHERAL VASCULAR DISORDER [None]
  - BLOOD GLUCOSE ABNORMAL [None]
  - BLISTER [None]
  - LIMB INJURY [None]
  - SENSORY LOSS [None]
